FAERS Safety Report 21701082 (Version 5)
Quarter: 2023Q2

REPORT INFORMATION
  Report Type: Spontaneous
  Country: US (occurrence: US)
  Receive Date: 20221208
  Receipt Date: 20230620
  Transmission Date: 20230722
  Serious: Yes (Other)
  Sender: FDA-Public Use
  Company Number: US-XERIS PHARMACEUTICALS-2022XER00407

PATIENT
  Age: 52 Year
  Sex: Female

DRUGS (3)
  1. RECORLEV [Suspect]
     Active Substance: LEVOKETOCONAZOLE
     Indication: Cushing^s syndrome
     Dosage: 1 TABLET (150 MG), 2X/DAY
     Route: 048
     Dates: start: 20221112, end: 2022
  2. RECORLEV [Suspect]
     Active Substance: LEVOKETOCONAZOLE
     Indication: Benign neoplasm of adrenal gland
     Dosage: ADJUSTMENT
     Dates: start: 2022
  3. RECORLEV [Suspect]
     Active Substance: LEVOKETOCONAZOLE
     Dosage: 2 TABLETS (300 MG), 2X/DAY
     Route: 048

REACTIONS (13)
  - Hyperglycaemia [Unknown]
  - Renal impairment [Unknown]
  - Nausea [Unknown]
  - Vomiting [Recovered/Resolved]
  - Fatigue [Unknown]
  - Blood alkaline phosphatase increased [Unknown]
  - Mood altered [Recovered/Resolved]
  - Skin bacterial infection [Not Recovered/Not Resolved]
  - Thyroid disorder [Unknown]
  - Blood glucose abnormal [Unknown]
  - Headache [Recovered/Resolved]
  - Unevaluable event [Unknown]
  - Oedema peripheral [Unknown]

NARRATIVE: CASE EVENT DATE: 20221101
